FAERS Safety Report 9229081 (Version 1)
Quarter: 2013Q2

REPORT INFORMATION
  Report Type: Spontaneous
  Country: AU (occurrence: AU)
  Receive Date: 20130412
  Receipt Date: 20130412
  Transmission Date: 20140414
  Serious: Yes (Hospitalization)
  Sender: FDA-Public Use
  Company Number: AU-ASTRAZENECA-2013SE22919

PATIENT
  Age: 31 Year
  Sex: Female

DRUGS (11)
  1. MEROPENEM [Suspect]
     Route: 042
     Dates: start: 20120904, end: 20120910
  2. VANCOMYCIN HYDROCHLORIDE [Suspect]
     Route: 065
     Dates: start: 20120826, end: 20120908
  3. ASPIRIN [Concomitant]
  4. ASPIRIN, DIPYRIDAMOLE [Concomitant]
  5. ATORVASTATIN [Concomitant]
  6. DOCUSATE-SENNOSIDE [Concomitant]
  7. OMEPRAZOLE [Concomitant]
  8. THIAMINE [Concomitant]
  9. CEFTRIAXONE [Concomitant]
  10. TIMENTIN [Concomitant]
  11. METRONIDAZOLE [Concomitant]

REACTIONS (3)
  - Subdural empyema [Not Recovered/Not Resolved]
  - Febrile neutropenia [Not Recovered/Not Resolved]
  - Pneumonia [Unknown]
